FAERS Safety Report 9298243 (Version 1)
Quarter: 2013Q1

REPORT INFORMATION
  Report Type: Spontaneous
  Country: US (occurrence: None)
  Receive Date: 20121227
  Receipt Date: 20121227
  Transmission Date: 20140127
  Serious: No
  Sender: FDA-Public Use
  Company Number: PHEH2012US013862

PATIENT
  Age: 58 Year
  Sex: Male
  Weight: 84 kg

DRUGS (1)
  1. AFINITOR [Suspect]
     Indication: PANCREATIC NEUROENDOCRINE TUMOUR
     Route: 048
     Dates: start: 20111111, end: 201208

REACTIONS (6)
  - Arthropathy [None]
  - Vision blurred [None]
  - Fatigue [None]
  - Asthenia [None]
  - Weight decreased [None]
  - Arthralgia [None]
